FAERS Safety Report 4736692-7 (Version None)
Quarter: 2005Q3

REPORT INFORMATION
  Report Type: 
  Country: None (occurrence: None)
  Receive Date: 20050808
  Receipt Date: 20050727
  Transmission Date: 20060218
  Serious: Yes (Hospitalization)
  Sender: FDA-Public Use
  Company Number: GB-BRISTOL-MYERS SQUIBB COMPANY-13056692

PATIENT
  Sex: Female

DRUGS (7)
  1. APROVEL TABS 300 MG [Suspect]
     Indication: HYPERTENSION
     Dosage: START ON 300MG DAILY; DISCONTINUED FOR 3 DAYS; RESTARTED AT 300MG DAILY
     Route: 048
  2. SIMVASTATIN [Concomitant]
  3. BISOPROLOL [Concomitant]
  4. ASPIRIN [Concomitant]
  5. CLOPIDOGREL BISULFATE [Concomitant]
  6. FELODIPINE [Concomitant]
  7. AMLODIPINE [Concomitant]

REACTIONS (5)
  - CONFUSIONAL STATE [None]
  - DELUSION [None]
  - HYPONATRAEMIA [None]
  - MYOCARDIAL INFARCTION [None]
  - PSYCHOTIC DISORDER [None]
